FAERS Safety Report 11543938 (Version 1)
Quarter: 2015Q3

REPORT INFORMATION
  Report Type: Spontaneous
  Country: US (occurrence: US)
  Receive Date: 20150924
  Receipt Date: 20150924
  Transmission Date: 20151125
  Serious: No
  Sender: FDA-Public Use
  Company Number: PHEH2015US018128

PATIENT
  Sex: Female

DRUGS (2)
  1. GILENYA [Suspect]
     Active Substance: FINGOLIMOD HYDROCHLORIDE
     Indication: RELAPSING-REMITTING MULTIPLE SCLEROSIS
     Route: 065
  2. AMPYRA [Suspect]
     Active Substance: DALFAMPRIDINE
     Indication: PRODUCT USED FOR UNKNOWN INDICATION
     Dosage: 10 MG, UNK
     Route: 065

REACTIONS (9)
  - Paraesthesia [Unknown]
  - Disturbance in attention [Unknown]
  - Aphasia [Unknown]
  - Fatigue [Unknown]
  - Injection site reaction [Unknown]
  - Drug ineffective [Unknown]
  - Insomnia [Unknown]
  - Sleep disorder [Unknown]
  - Hypoaesthesia [Unknown]
